FAERS Safety Report 23579747 (Version 1)
Quarter: 2024Q1

REPORT INFORMATION
  Report Type: Report from Study
  Country: CA (occurrence: CA)
  Receive Date: 20240229
  Receipt Date: 20240229
  Transmission Date: 20240410
  Serious: Yes (Hospitalization)
  Sender: FDA-Public Use
  Company Number: CA-SANDOZ-NVSC2022CA101537

PATIENT
  Sex: Male
  Weight: 89.811 kg

DRUGS (4)
  1. PIRFENIDONE [Suspect]
     Active Substance: PIRFENIDONE
     Indication: Idiopathic pulmonary fibrosis
     Dosage: 2403 MG/KG, TID
     Route: 048
  2. PIRFENIDONE [Suspect]
     Active Substance: PIRFENIDONE
     Dosage: UNK
     Route: 048
     Dates: start: 20231123
  3. PIRFENIDONE [Suspect]
     Active Substance: PIRFENIDONE
     Dosage: UNK, ORAL TABLETS
     Route: 048
     Dates: start: 20211210
  4. VENTOLIN [Concomitant]
     Active Substance: ALBUTEROL SULFATE
     Indication: Product used for unknown indication
     Dosage: UNK, PRN
     Route: 065

REACTIONS (15)
  - Hospitalisation [Unknown]
  - Restrictive pulmonary disease [Unknown]
  - Asthma [Unknown]
  - Expiratory reserve volume decreased [Unknown]
  - Inspiratory capacity decreased [Unknown]
  - Slow vital capacity decreased [Unknown]
  - Total lung capacity decreased [Unknown]
  - FEV1/FVC ratio decreased [Unknown]
  - Forced vital capacity decreased [Unknown]
  - Lung diffusion test decreased [Unknown]
  - Respiratory gas exchange disorder [Unknown]
  - Respiratory gas exchange disorder [Unknown]
  - Gastrointestinal disorder [Unknown]
  - Forced vital capacity abnormal [Unknown]
  - Drug intolerance [Unknown]
